FAERS Safety Report 4674749-X (Version None)
Quarter: 2005Q2

REPORT INFORMATION
  Report Type: 
  Country: None (occurrence: None)
  Receive Date: 20050525
  Receipt Date: 20050509
  Transmission Date: 20051028
  Serious: Yes (Death)
  Sender: FDA-Public Use
  Company Number: 2005-BP-07752RO

PATIENT

DRUGS (1)
  1. MORPHINE SULFATE [Suspect]
     Dosage: REC'D 10-20ML INSTEAD OF 10-20MG (SEE TEXT), PO
     Route: 048

REACTIONS (2)
  - DRUG DISPENSING ERROR [None]
  - INCORRECT DOSE ADMINISTERED [None]
